FAERS Safety Report 14590249 (Version 1)
Quarter: 2018Q1

REPORT INFORMATION
  Report Type: Spontaneous
  Country: US (occurrence: US)
  Receive Date: 20180302
  Receipt Date: 20180302
  Transmission Date: 20180509
  Serious: No
  Sender: FDA-Public Use
  Company Number: US-PFIZER INC-2018078574

PATIENT
  Age: 70 Year
  Sex: Female

DRUGS (2)
  1. NICOTROL [Suspect]
     Active Substance: NICOTINE
     Indication: SMOKING CESSATION THERAPY
     Dosage: 10 MG, UNK (1 UNIT BY MOUTH SIX TIMES A DAY)
     Route: 055
  2. NICOTROL [Suspect]
     Active Substance: NICOTINE
     Dosage: 10 MG, AS NEEDED  (1 UNIT BY MOUTH SIX TIMES A DAY) (IF NEEDED 10 MG CARTRIDGE)
     Route: 055

REACTIONS (1)
  - Drug ineffective [Unknown]
